FAERS Safety Report 12418162 (Version 2)
Quarter: 2016Q2

REPORT INFORMATION
  Report Type: Spontaneous
  Country: DE (occurrence: DE)
  Receive Date: 20160531
  Receipt Date: 20160606
  Transmission Date: 20160815
  Serious: Yes (Hospitalization)
  Sender: FDA-Public Use
  Company Number: DE-AMGEN-DEUSP2016068125

PATIENT
  Sex: Male

DRUGS (34)
  1. DOXORUBICIN [Suspect]
     Active Substance: DOXORUBICIN
     Indication: B-CELL LYMPHOMA
     Dosage: FIRST CYCLE
     Route: 065
     Dates: start: 20160318
  2. DOXORUBICIN [Suspect]
     Active Substance: DOXORUBICIN
     Dosage: SECOND CYCLE
     Route: 065
     Dates: start: 20160401
  3. BISOPROLOL [Concomitant]
     Active Substance: BISOPROLOL
     Indication: HYPERTENSION
     Dosage: 1.25 MG, 1 IN 1 D
     Dates: start: 20160322
  4. RITUXIMAB [Suspect]
     Active Substance: RITUXIMAB
     Dosage: 722 MG, 1 IN 1 D
     Route: 042
     Dates: start: 20160512, end: 20160512
  5. NATRIUMPICOSULFAT [Concomitant]
     Indication: CONSTIPATION
     Dosage: UNK
  6. CHOLECALCIFEROL [Concomitant]
     Active Substance: CHOLECALCIFEROL
     Indication: VITAMIN SUPPLEMENTATION
     Dosage: 20000 IU, 1 IN 1WK
     Dates: start: 20160329
  7. AMPHOTERICIN B. [Concomitant]
     Active Substance: AMPHOTERICIN B
     Dosage: 2 PIPETTES; UNTIL LEUKOCYTE BECOME MORE THAT 1000 MCL (4 IN 1 D)
     Route: 048
  8. CIPROFLOXACIN. [Concomitant]
     Active Substance: CIPROFLOXACIN
     Dosage: 1-0-1 UNTIL LEUKOCYTE COUNT BECOME MORE THAT 1000 MCL (500 MG)
     Route: 048
  9. CYCLOPHOSPHAMIDE. [Suspect]
     Active Substance: CYCLOPHOSPHAMIDE
     Indication: B-CELL LYMPHOMA
     Dosage: FIRST CYCLE
     Route: 065
     Dates: start: 20160318
  10. CYCLOPHOSPHAMIDE. [Suspect]
     Active Substance: CYCLOPHOSPHAMIDE
     Dosage: SECOND CYCLE
     Route: 065
     Dates: start: 20160401
  11. MACROGOL W/POTASSIUM CHLORIDE/SODIU/06401201/ [Concomitant]
     Indication: CONSTIPATION
     Dosage: 1 POUCHE
     Dates: start: 20160323
  12. TAMSULOSIN [Concomitant]
     Active Substance: TAMSULOSIN
     Indication: BENIGN PROSTATIC HYPERPLASIA
     Dosage: 4 MG, 1 IN 1 D
     Dates: start: 20160322
  13. PREDNISOLONE. [Suspect]
     Active Substance: PREDNISOLONE
     Dosage: 100 MG, 1 IN 1 D
     Route: 048
     Dates: start: 20160513, end: 20160517
  14. RAMIPRIL. [Concomitant]
     Active Substance: RAMIPRIL
     Indication: HYPERTENSION
     Dosage: 2.5 MG, 2 IN 1D
     Dates: start: 20160322
  15. HYDROMORPHONE [Concomitant]
     Active Substance: HYDROMORPHONE
     Indication: PAIN
     Dosage: 4 MG, 2 IN 1 D
     Dates: start: 20160322
  16. ACICLOVIR [Concomitant]
     Active Substance: ACYCLOVIR
     Dosage: 400 MG, 2 IN 1 D
     Dates: start: 20160518
  17. VINCRISTINE [Suspect]
     Active Substance: VINCRISTINE
     Indication: B-CELL LYMPHOMA
     Dosage: FIRST CYCLE
     Route: 065
     Dates: start: 20160318
  18. DOXORUBICIN [Suspect]
     Active Substance: DOXORUBICIN
     Dosage: 95 MG, 1 IN 1 D
     Route: 042
     Dates: start: 20160513, end: 20160513
  19. FEBUXOSTAT. [Concomitant]
     Active Substance: FEBUXOSTAT
     Indication: HYPERURICAEMIA
     Dosage: 80 MG, 1 IN 1D
     Route: 048
     Dates: start: 20160512
  20. COLECALCIFEROL [Concomitant]
     Active Substance: CHOLECALCIFEROL
     Indication: VITAMIN D DEFICIENCY
     Dosage: 20000 IU, QWK
     Route: 048
     Dates: start: 20160516
  21. RITUXIMAB [Suspect]
     Active Substance: RITUXIMAB
     Indication: B-CELL LYMPHOMA
     Dosage: 750 MG, UNK
     Route: 042
     Dates: start: 20160302
  22. VINCRISTINE [Suspect]
     Active Substance: VINCRISTINE
     Dosage: SECOND CYCLE
     Route: 065
     Dates: start: 20160401
  23. FOLSAEURE [Concomitant]
     Active Substance: FOLIC ACID
     Dosage: 5 MG, 1 IN 1D
     Route: 048
     Dates: start: 20160518
  24. METAMIZOL NATRIUM [Concomitant]
     Indication: PAIN
     Dosage: 500 MG, 3 IN 1D
     Dates: start: 20160322
  25. HYDROMORPHONE [Concomitant]
     Active Substance: HYDROMORPHONE
     Dosage: 4 MG, 2 IN 1 D
     Route: 048
     Dates: start: 20160512
  26. ZOPICON [Concomitant]
     Indication: SLEEP DISORDER
     Dosage: UNK
  27. SULFAMETHOXAZOLE AND TRIMETHOPRIM [Concomitant]
     Active Substance: SULFAMETHOXAZOLE\TRIMETHOPRIM
     Dosage: 960 MG, UNK
     Dates: start: 20160518
  28. PREDNISOLONE. [Suspect]
     Active Substance: PREDNISOLONE
     Indication: B-CELL LYMPHOMA
     Dosage: 100 MG, 1 IN 1 D
     Route: 048
     Dates: start: 20160226
  29. VINCRISTINE [Suspect]
     Active Substance: VINCRISTINE
     Dosage: 3.98 MG, 1 IN 1 D
     Route: 042
     Dates: start: 20160513, end: 20160513
  30. PANTOPRAZOL NATRIUM [Concomitant]
     Indication: PROPHYLAXIS
     Dosage: 40 MG, 1 IN 1D
     Dates: start: 20160322
  31. PANTOPRAZOL NATRIUM [Concomitant]
     Dosage: 40 MG
     Route: 048
     Dates: start: 20160512
  32. SULFAMETHOXAZOLE AND TRIMETHOPRIM [Concomitant]
     Active Substance: SULFAMETHOXAZOLE\TRIMETHOPRIM
     Indication: PROPHYLAXIS
     Dosage: 960 MG, (MONDAY, WEDNESDAY AND FRIDAY)
     Dates: start: 20160324
  33. PEGFILGRASTIM [Suspect]
     Active Substance: PEGFILGRASTIM
     Indication: B-CELL LYMPHOMA
     Dosage: 6 MG, 1 IN 1 D
     Route: 058
     Dates: start: 20160516, end: 20160516
  34. CYCLOPHOSPHAMIDE. [Suspect]
     Active Substance: CYCLOPHOSPHAMIDE
     Dosage: 1425 MG, 1 IN 1 D
     Route: 042
     Dates: start: 20160513, end: 20160513

REACTIONS (2)
  - Blood creatinine increased [Recovered/Resolved]
  - Hypotension [Unknown]

NARRATIVE: CASE EVENT DATE: 20160307
